FAERS Safety Report 4300007-9 (Version None)
Quarter: 2004Q1

REPORT INFORMATION
  Report Type: 
  Country: None (occurrence: None)
  Receive Date: 20040218
  Receipt Date: 20031218
  Transmission Date: 20041129
  Serious: Yes (Hospitalization)
  Sender: FDA-Public Use
  Company Number: JP-JNJFOC-20031202089

PATIENT
  Age: 41 Year
  Sex: Male
  Weight: 48.4 kg

DRUGS (12)
  1. REMICADE [Suspect]
     Indication: RHEUMATOID ARTHRITIS
     Dosage: 3 MG/KG, 1 IN 1 AS NECESSARY, INTRAVENOUS DRIP; SEE IMAGE
     Route: 041
     Dates: start: 20031020, end: 20031020
  2. REMICADE [Suspect]
     Indication: RHEUMATOID ARTHRITIS
     Dosage: 3 MG/KG, 1 IN 1 AS NECESSARY, INTRAVENOUS DRIP; SEE IMAGE
     Route: 041
     Dates: start: 20031105, end: 20031105
  3. RHEUMATREX [Suspect]
     Indication: RHEUMATOID ARTHRITIS
     Dosage: 4 MG, IN 1 WEEK, ORAL; SEE IMAGE
     Route: 048
     Dates: start: 20030704, end: 20030704
  4. RHEUMATREX [Suspect]
     Indication: RHEUMATOID ARTHRITIS
     Dosage: 4 MG, IN 1 WEEK, ORAL; SEE IMAGE
     Route: 048
     Dates: start: 20030725, end: 20030821
  5. RHEUMATREX [Suspect]
     Indication: RHEUMATOID ARTHRITIS
     Dosage: 4 MG, IN 1 WEEK, ORAL; SEE IMAGE
     Route: 048
     Dates: start: 20030822, end: 20031121
  6. RHEUMATREX [Suspect]
     Indication: RHEUMATOID ARTHRITIS
     Dosage: 4 MG, IN 1 WEEK, ORAL; SEE IMAGE
     Route: 048
     Dates: start: 20031122
  7. PREDNISOLONE [Concomitant]
  8. VOLTAREN SR (DICLOFENAC SODIUM) CAPSULES [Concomitant]
  9. ALFAROL (ALFACALCIDOL) CAPSULES [Concomitant]
  10. MUCOSTA (REBAMIPIDE) TABLETS [Concomitant]
  11. GASTER D (FAMOTIDINE ) TABLETS [Concomitant]
  12. BENET (ALL OTHER THERAPEUTIC PRODUCTS) TABLETS [Concomitant]

REACTIONS (5)
  - ALANINE AMINOTRANSFERASE INCREASED [None]
  - ASPARTATE AMINOTRANSFERASE INCREASED [None]
  - GAMMA-GLUTAMYLTRANSFERASE INCREASED [None]
  - LIVER DISORDER [None]
  - PNEUMONIA BACTERIAL [None]
